FAERS Safety Report 14403880 (Version 1)
Quarter: 2018Q1

REPORT INFORMATION
  Report Type: Spontaneous
  Country: FR (occurrence: FR)
  Receive Date: 20180117
  Receipt Date: 20180117
  Transmission Date: 20180509
  Serious: Yes (Hospitalization)
  Sender: FDA-Public Use
  Company Number: FR-PFIZER INC-2018021481

PATIENT
  Age: 88 Year
  Sex: Female
  Weight: 54 kg

DRUGS (21)
  1. STERDEX [Suspect]
     Active Substance: DEXAMETHASONE\OXYTETRACYCLINE
     Indication: ANTIBIOTIC PROPHYLAXIS
     Dosage: UNK
     Route: 047
     Dates: start: 20170227, end: 20170228
  2. COMBIGAN [Suspect]
     Active Substance: BRIMONIDINE TARTRATE\TIMOLOL MALEATE
     Indication: VITRECTOMY
     Dosage: 2 GTT, 1X/DAY
     Route: 047
     Dates: start: 20170228, end: 20170309
  3. AZYTER [Suspect]
     Active Substance: AZITHROMYCIN ANHYDROUS
     Indication: ANTIBIOTIC PROPHYLAXIS
     Dosage: 1 DF, TOTAL
     Route: 047
     Dates: start: 20170228, end: 20170228
  4. DEXAFREE [Suspect]
     Active Substance: DEXAMETHASONE SODIUM PHOSPHATE
     Indication: VITRECTOMY
     Dosage: 1 DF, TOTAL
     Route: 047
     Dates: start: 20170228, end: 20170228
  5. DESFLURANE. [Suspect]
     Active Substance: DESFLURANE
     Indication: ANAESTHESIA
     Dosage: UNK
     Route: 055
     Dates: start: 20170227, end: 20170227
  6. MYDRIATICUM [Suspect]
     Active Substance: TROPICAMIDE
     Indication: MYDRIASIS
     Dosage: 1 DF, TOTAL
     Route: 047
     Dates: start: 20170228, end: 20170228
  7. EPHEDRINE. [Suspect]
     Active Substance: EPHEDRINE
     Indication: VITRECTOMY
     Dosage: 6 MG, TOTAL
     Route: 042
     Dates: start: 20170227, end: 20170227
  8. OFLOCET /00731801/ [Suspect]
     Active Substance: OFLOXACIN
     Indication: ANTIBIOTIC PROPHYLAXIS
     Dosage: 200 MG, TOTAL
     Route: 048
     Dates: start: 20170227, end: 20170227
  9. PROPOFOL. [Suspect]
     Active Substance: PROPOFOL
     Indication: ANAESTHESIA
     Dosage: 150 MG, TOTAL
     Route: 042
     Dates: start: 20170227, end: 20170227
  10. SUFENTANIL [Suspect]
     Active Substance: SUFENTANIL
     Indication: ANAESTHESIA
     Dosage: 15 UG, TOTAL
     Route: 042
     Dates: start: 20170227, end: 20170227
  11. TOPALGIC (TRAMADOL HYDROCHLORIDE) [Suspect]
     Active Substance: TRAMADOL HYDROCHLORIDE
     Indication: PAIN
     Dosage: 1 DF, TOTAL
     Route: 048
     Dates: start: 20170228, end: 20170228
  12. RIFAMYCINE CHIBRET [Suspect]
     Active Substance: RIFAMYCIN
     Indication: ANTIBIOTIC PROPHYLAXIS
     Dosage: 3 DF, 1X/DAY
     Route: 047
     Dates: start: 20170228, end: 20170306
  13. TOBRADEX [Suspect]
     Active Substance: DEXAMETHASONE\TOBRAMYCIN
     Indication: ANTIBIOTIC PROPHYLAXIS
     Dosage: 3 GTT, 1X/DAY
     Route: 047
     Dates: start: 20170228, end: 20170309
  14. PERFALGAN [Suspect]
     Active Substance: ACETAMINOPHEN
     Indication: PAIN PROPHYLAXIS
     Dosage: 1 G, TOTAL
     Route: 042
     Dates: start: 20170227, end: 20170227
  15. NEOSYNEPHRINE [Suspect]
     Active Substance: PHENYLEPHRINE HYDROCHLORIDE
     Indication: VITRECTOMY
     Dosage: 100 MG, TOTAL
     Route: 042
     Dates: start: 20170227, end: 20170227
  16. NEOSYNEPHRINE [Suspect]
     Active Substance: PHENYLEPHRINE HYDROCHLORIDE
     Indication: ANTIBIOTIC PROPHYLAXIS
     Dosage: 1 DF, TOTAL
     Route: 047
     Dates: start: 20170228, end: 20170228
  17. TRACRIUM [Suspect]
     Active Substance: ATRACURIUM BESYLATE
     Indication: ANAESTHESIA
     Dosage: 20 MG, TOTAL
     Route: 042
     Dates: start: 20170227, end: 20170227
  18. CORTANCYL [Suspect]
     Active Substance: PREDNISONE
     Indication: VITRECTOMY
     Dosage: UNK
     Route: 048
     Dates: start: 20170228, end: 20170309
  19. ATARAX [Concomitant]
     Active Substance: HYDROXYZINE HYDROCHLORIDE
     Indication: RASH
     Dosage: 1 DF, TOTAL
     Route: 048
     Dates: start: 20170227, end: 20170227
  20. METHYLPREDNISOLONE SODIUM SUCCINATE. [Suspect]
     Active Substance: METHYLPREDNISOLONE SODIUM SUCCINATE
     Indication: VITRECTOMY
     Dosage: 120 MG, TOTAL
     Route: 042
     Dates: start: 20170227, end: 20170227
  21. NEFOPAM HYDROCHLORIDE [Suspect]
     Active Substance: NEFOPAM HYDROCHLORIDE
     Indication: PAIN PROPHYLAXIS
     Dosage: 20 MG, TOTAL
     Route: 042
     Dates: start: 20170227, end: 20170227

REACTIONS (1)
  - Drug reaction with eosinophilia and systemic symptoms [Recovering/Resolving]

NARRATIVE: CASE EVENT DATE: 20170306
